FAERS Safety Report 10085697 (Version 1)
Quarter: 2014Q2

REPORT INFORMATION
  Report Type: Spontaneous
  Country: US (occurrence: None)
  Receive Date: 20140416
  Receipt Date: 20140416
  Transmission Date: 20141212
  Serious: Yes (Other)
  Sender: FDA-Public Use
  Company Number: 201311021

PATIENT
  Age: 58 Year
  Sex: Male
  Weight: 102.06 kg

DRUGS (8)
  1. TESTOPEL [Suspect]
     Indication: BLOOD TESTOSTERONE DECREASED
     Dosage: PELLETS
     Route: 058
     Dates: start: 20131003
  2. METOPROLOL [Concomitant]
  3. BENAZAPRIL [Concomitant]
  4. AMLODIPINE [Concomitant]
  5. BUPROPION [Concomitant]
  6. VENLAFAXINE [Concomitant]
  7. TRAZODONE [Concomitant]
  8. SIMVASTATIN [Concomitant]

REACTIONS (4)
  - Injection site swelling [None]
  - Injection site discharge [None]
  - Device dislocation [None]
  - Drug ineffective [None]
